FAERS Safety Report 9734466 (Version 2)
Quarter: 2013Q4

REPORT INFORMATION
  Report Type: Spontaneous
  Country: US (occurrence: US)
  Receive Date: 20131206
  Receipt Date: 20131206
  Transmission Date: 20140711
  Serious: Yes (Hospitalization)
  Sender: FDA-Public Use
  Company Number: US-BIOGENIDEC-2013BI073842

PATIENT
  Age: 52 Year
  Sex: Female

DRUGS (1)
  1. AVONEX [Suspect]
     Indication: MULTIPLE SCLEROSIS
     Route: 030
     Dates: start: 20120504

REACTIONS (8)
  - Cardio-respiratory distress [Recovered/Resolved]
  - Fall [Recovered/Resolved]
  - Pneumonia [Recovered/Resolved]
  - Gait disturbance [Not Recovered/Not Resolved]
  - Adverse event [Not Recovered/Not Resolved]
  - Somnolence [Recovered/Resolved with Sequelae]
  - Tremor [Not Recovered/Not Resolved]
  - Nausea [Not Recovered/Not Resolved]
